FAERS Safety Report 15765449 (Version 1)
Quarter: 2018Q4

REPORT INFORMATION
  Report Type: Spontaneous
  Country: US (occurrence: US)
  Receive Date: 20181227
  Receipt Date: 20181227
  Transmission Date: 20190205
  Serious: No
  Sender: FDA-Public Use
  Company Number: US-SA-2018SA207148

PATIENT
  Sex: Female

DRUGS (1)
  1. ROLAIDS ADVANCED ANTACID ANTI-GAS MIXED BERRY [Suspect]
     Active Substance: CALCIUM CARBONATE\DIMETHICONE\MAGNESIUM HYDROXIDE

REACTIONS (4)
  - Product taste abnormal [Unknown]
  - Dysgeusia [Unknown]
  - Product physical consistency issue [Unknown]
  - Expired product administered [Unknown]
